FAERS Safety Report 6520628-2 (Version None)
Quarter: 2009Q4

REPORT INFORMATION
  Report Type: 
  Country: None (occurrence: None)
  Receive Date: 20091229
  Receipt Date: 20091216
  Transmission Date: 20100525
  Serious: Yes (Life-Threatening)
  Sender: FDA-Public Use
  Company Number: JP-BRISTOL-MYERS SQUIBB COMPANY-14906903

PATIENT
  Age: 58 Year
  Sex: Male

DRUGS (3)
  1. ABILIFY [Suspect]
     Indication: SCHIZOPHRENIA, RESIDUAL TYPE
     Route: 048
  2. RISPERDAL [Concomitant]
  3. EVAMYL [Concomitant]
     Dosage: EVAMYL TABLET.

REACTIONS (1)
  - HYPOTHERMIA [None]
